FAERS Safety Report 13779331 (Version 3)
Quarter: 2017Q4

REPORT INFORMATION
  Report Type: Spontaneous
  Country: US (occurrence: US)
  Receive Date: 20170721
  Receipt Date: 20171031
  Transmission Date: 20180320
  Serious: Yes (Hospitalization, Other)
  Sender: FDA-Public Use
  Company Number: US-BAUSCH-BL-2017-021800

PATIENT
  Age: 88 Year
  Sex: Female
  Weight: 68.1 kg

DRUGS (5)
  1. DILTIAZEM CD [Suspect]
     Active Substance: DILTIAZEM
     Indication: HYPERTENSION
     Dosage: ONE CAPSULE AM AND ONE CAPSULE PM
     Route: 048
     Dates: start: 2017, end: 201707
  2. DILTIAZEM. [Suspect]
     Active Substance: DILTIAZEM
     Indication: PRODUCT USED FOR UNKNOWN INDICATION
     Route: 065
     Dates: start: 2017
  3. DILTIAZEM CD [Suspect]
     Active Substance: DILTIAZEM
     Indication: ATRIAL FIBRILLATION
     Dosage: TWO 120 MG CAPSULES IN THE MORNING AND ONE 120 MG CAPSULE AT NIGHT
     Route: 048
     Dates: start: 201701
  4. DILTIAZEM 24 HOUR EXTENDED RELEASE CAPSULE [Suspect]
     Active Substance: DILTIAZEM
     Indication: PRODUCT USED FOR UNKNOWN INDICATION
     Dosage: TAKEN ONLY ONE PILL
     Route: 065
     Dates: start: 2017, end: 2017
  5. DILTIAZEM. [Suspect]
     Active Substance: DILTIAZEM
     Indication: HYPERTENSION

REACTIONS (9)
  - Atrial fibrillation [Recovering/Resolving]
  - Feeling abnormal [Recovering/Resolving]
  - Abdominal pain upper [Recovering/Resolving]
  - Drug ineffective [Recovered/Resolved]
  - Heart rate increased [Recovered/Resolved]
  - Headache [Recovering/Resolving]
  - Nausea [Recovering/Resolving]
  - Vision blurred [Recovering/Resolving]
  - Drug intolerance [Unknown]

NARRATIVE: CASE EVENT DATE: 2017
